FAERS Safety Report 5839768-6 (Version None)
Quarter: 2008Q3

REPORT INFORMATION
  Report Type: 
  Country: None (occurrence: None)
  Receive Date: 20080811
  Receipt Date: 20080731
  Transmission Date: 20090109
  Serious: Yes (Other)
  Sender: FDA-Public Use
  Company Number: PHHO2008GB09509

PATIENT

DRUGS (1)
  1. TASIGNA [Suspect]
     Dosage: HIGHER DOSE
     Route: 048

REACTIONS (2)
  - DIALYSIS [None]
  - DRUG TOXICITY [None]
